FAERS Safety Report 20261478 (Version 4)
Quarter: 2022Q1

REPORT INFORMATION
  Report Type: Spontaneous
  Country: US (occurrence: US)
  Receive Date: 20211231
  Receipt Date: 20220208
  Transmission Date: 20220423
  Serious: No
  Sender: FDA-Public Use
  Company Number: US-LUPIN PHARMACEUTICALS INC.-2021-25488

PATIENT
  Age: 6 Year
  Sex: Male
  Weight: 22.676 kg

DRUGS (2)
  1. FAMOTIDINE [Suspect]
     Active Substance: FAMOTIDINE
     Indication: Gastrooesophageal reflux disease
     Dosage: 2.2 MILLILITER, BID, STRENTH-40 MG/5 ML
     Route: 048
     Dates: start: 20211213
  2. FAMOTIDINE [Suspect]
     Active Substance: FAMOTIDINE
     Dosage: UNK
     Route: 048

REACTIONS (5)
  - Poor quality product administered [Unknown]
  - Product taste abnormal [Unknown]
  - Product quality issue [Unknown]
  - Product odour abnormal [Unknown]
  - No adverse event [Unknown]

NARRATIVE: CASE EVENT DATE: 20211201
